FAERS Safety Report 6997593-7 (Version None)
Quarter: 2010Q3

REPORT INFORMATION
  Report Type: 
  Country: None (occurrence: None)
  Receive Date: 20100918
  Receipt Date: 20091102
  Transmission Date: 20110219
  Serious: No
  Sender: FDA-Public Use
  Company Number: US-WYE-H12028509

PATIENT
  Age: 50 Year
  Sex: Male
  Weight: 65.83 kg

DRUGS (2)
  1. ADVIL COLD AND SINUS [Suspect]
     Indication: NASOPHARYNGITIS
     Dosage: 1 CAPSULE PER DAY WHEN NEEDED
     Route: 048
  2. ADVIL COLD AND SINUS [Suspect]
     Dosage: 2 CAPSULES IN SIX HOURS
     Route: 048
     Dates: start: 20091001, end: 20091001

REACTIONS (2)
  - DIZZINESS [None]
  - VERTIGO [None]
